FAERS Safety Report 6866506-0 (Version None)
Quarter: 2010Q2

REPORT INFORMATION
  Report Type: 
  Country: None (occurrence: None)
  Receive Date: 20100601
  Receipt Date: 20090623
  Transmission Date: 20101027
  Serious: Yes (Other)
  Sender: FDA-Public Use
  Company Number: 2009231974

PATIENT

DRUGS (2)
  1. SOLU-MEDROL (METHYLPREDNISOLONE SODIUM SUCCINATE) POWDER FOR SOLUTION [Suspect]
  2. INSULIN (INSULIN) [Concomitant]

REACTIONS (1)
  - BLOOD GLUCOSE INCREASED [None]
